FAERS Safety Report 12127193 (Version 8)
Quarter: 2016Q3

REPORT INFORMATION
  Report Type: Report from Study
  Country: BR (occurrence: BR)
  Receive Date: 20160229
  Receipt Date: 20160906
  Transmission Date: 20161109
  Serious: Yes (Hospitalization, Other)
  Sender: FDA-Public Use
  Company Number: PHHY2016BR025793

PATIENT
  Age: 65 Year
  Sex: Female
  Weight: 59 kg

DRUGS (3)
  1. SANDOSTATIN LAR DEPOT [Suspect]
     Active Substance: OCTREOTIDE ACETATE
     Indication: ACROMEGALY
     Dosage: 20 MG, QMO (EVERY 28 DAYS)
     Route: 030
     Dates: start: 2009
  2. HYDROCHLOROTHIAZIDE. [Concomitant]
     Active Substance: HYDROCHLOROTHIAZIDE
     Indication: HYPERTENSION
     Dosage: 1 DF, QD
     Route: 048
  3. CAPTOPRIL. [Concomitant]
     Active Substance: CAPTOPRIL
     Indication: HYPERTENSION
     Dosage: 4 DF, QD
     Route: 048

REACTIONS (10)
  - Fracture pain [Recovered/Resolved]
  - Gait disturbance [Recovered/Resolved]
  - Blood growth hormone abnormal [Unknown]
  - Hormone level abnormal [Unknown]
  - Pain in extremity [Recovered/Resolved]
  - Fall [Unknown]
  - Thyroid mass [Unknown]
  - Sleep disorder due to general medical condition, insomnia type [Unknown]
  - Femur fracture [Recovered/Resolved]
  - Body height decreased [Unknown]

NARRATIVE: CASE EVENT DATE: 20151207
